FAERS Safety Report 8268563-6 (Version None)
Quarter: 2012Q2

REPORT INFORMATION
  Report Type: 
  Country: None (occurrence: None)
  Receive Date: 20120409
  Receipt Date: 20120327
  Transmission Date: 20120825
  Serious: Yes (Hospitalization)
  Sender: FDA-Public Use
  Company Number: JP-VERTEX PHARMACEUTICALS INC.-AE-2012-004554

PATIENT
  Age: 73 Year
  Sex: Female

DRUGS (15)
  1. PEG-INTRON [Concomitant]
     Route: 051
     Dates: start: 20120307, end: 20120313
  2. FAMOTIDINE [Concomitant]
     Route: 048
  3. BLODPRESS [Concomitant]
     Route: 048
  4. PEG-INTRON [Concomitant]
     Route: 051
     Dates: start: 20120223, end: 20120229
  5. PEG-INTRON [Concomitant]
     Route: 051
     Dates: start: 20120301, end: 20120306
  6. ONEALFA [Concomitant]
     Route: 048
  7. ALLOPURINOL [Concomitant]
     Route: 048
     Dates: start: 20120206
  8. GASMOTIN [Concomitant]
     Route: 048
     Dates: start: 20120214
  9. RIBAVIRIN [Concomitant]
     Route: 048
     Dates: start: 20120307, end: 20120313
  10. PEG-INTRON [Concomitant]
     Indication: HEPATITIS C
     Route: 051
     Dates: start: 20120202, end: 20120209
  11. RIBAVIRIN [Concomitant]
     Route: 048
     Dates: start: 20120209, end: 20120306
  12. DIFLUNISAL [Concomitant]
     Route: 048
  13. TELAVIC (TELAPREVIR) [Suspect]
     Indication: HEPATITIS C
     Route: 048
     Dates: start: 20120202, end: 20120214
  14. RIBAVIRIN [Concomitant]
     Indication: HEPATITIS C
     Route: 048
     Dates: start: 20120202, end: 20120208
  15. DOMPERIDONE [Concomitant]
     Route: 048
     Dates: start: 20120215

REACTIONS (1)
  - DECREASED APPETITE [None]
